FAERS Safety Report 12429257 (Version 6)
Quarter: 2017Q1

REPORT INFORMATION
  Report Type: Report from Study
  Country: CA (occurrence: CA)
  Receive Date: 20160602
  Receipt Date: 20170112
  Transmission Date: 20170428
  Serious: Yes (Other)
  Sender: FDA-Public Use
  Company Number: CA-HLSUS-2016-CA-000164

PATIENT
  Age: 25 Year
  Sex: Male
  Weight: 91 kg

DRUGS (1)
  1. CLOZARIL [Suspect]
     Active Substance: CLOZAPINE
     Indication: SCHIZOPHRENIA
     Dosage: 200 MG PO AT BEDTIME
     Route: 048
     Dates: start: 20110629

REACTIONS (5)
  - Left atrial enlargement [Unknown]
  - Atrioventricular block first degree [Unknown]
  - Heart rate irregular [Unknown]
  - Tachycardia [Unknown]
  - Drug interaction [Unknown]

NARRATIVE: CASE EVENT DATE: 20160525
